FAERS Safety Report 10638244 (Version 1)
Quarter: 2014Q4

REPORT INFORMATION
  Report Type: Spontaneous
  Country: KE (occurrence: KE)
  Receive Date: 20141208
  Receipt Date: 20141208
  Transmission Date: 20150529
  Serious: Yes (Hospitalization)
  Sender: FDA-Public Use
  Company Number: KE-BAYER-2014-177346

PATIENT
  Age: 25 Year
  Sex: Female

DRUGS (1)
  1. YASMIN [Suspect]
     Active Substance: DROSPIRENONE\ETHINYL ESTRADIOL
     Indication: ACNE
     Dosage: UNK
     Dates: start: 201408, end: 20141115

REACTIONS (5)
  - Pulmonary embolism [Recovering/Resolving]
  - Chest pain [Recovering/Resolving]
  - Fall [Recovered/Resolved]
  - Pain in extremity [None]
  - Loss of consciousness [Recovered/Resolved]

NARRATIVE: CASE EVENT DATE: 201411
